FAERS Safety Report 7161394-X (Version None)
Quarter: 2010Q4

REPORT INFORMATION
  Report Type: 
  Country: None (occurrence: None)
  Receive Date: 20101201
  Receipt Date: 20101118
  Transmission Date: 20110411
  Serious: Yes (Hospitalization, Other)
  Sender: FDA-Public Use
  Company Number: 2010AP001934

PATIENT
  Age: 36 Year
  Sex: Female

DRUGS (19)
  1. SERTRALINE HYDROCHLORIDE [Suspect]
     Dosage: 100 MG;TAB;BID
     Dates: start: 20100730
  2. ARIPIPRAZOLE [Suspect]
     Dosage: 30 MG;TAB
     Dates: start: 20100730
  3. DIHYDROCODEINE BITARTRATE INJ [Suspect]
     Indication: BACK PAIN
     Dosage: 30 MG;TAB
     Dates: start: 20090923
  4. LAMICTAL [Suspect]
     Indication: EPILEPSY
     Dosage: 400 MG;TAB;PO;BID
     Route: 048
     Dates: start: 20040101
  5. LANSOPRAZOLE [Suspect]
     Dosage: 30 MG;CAP
     Dates: start: 20100730
  6. NORETHISTERONE [Suspect]
     Dosage: 350 UG;TAB
     Dates: start: 20090923
  7. PROPRANOLOL [Suspect]
     Dosage: 10 MG;TAB
     Dates: start: 20100730
  8. AMOXICILLIN [Concomitant]
  9. BETAMETHASONE [Concomitant]
  10. CHLORANMPHENICOL (CHLORAMPHENICOL) [Concomitant]
  11. CLOBAZAM (CLOBAZAM) [Concomitant]
  12. CLAVULANATE POTASSIUM (CLAVULANATE POTASSIUM) [Concomitant]
  13. DICLOFENAC SODIUM [Concomitant]
  14. FOLIC ACID [Concomitant]
  15. LACTULOSE [Concomitant]
  16. LIDOCAINE [Concomitant]
  17. MICONAZOLE [Concomitant]
  18. OMEPRAZOLE [Concomitant]
  19. PROCHLORPERAZINE MALEATE [Concomitant]

REACTIONS (8)
  - BACK PAIN [None]
  - CHOLESTASIS OF PREGNANCY [None]
  - CONVULSION [None]
  - DRUG EXPOSURE DURING PREGNANCY [None]
  - INDUCED LABOUR [None]
  - PREGNANCY [None]
  - PREMATURE LABOUR [None]
  - PRURITUS [None]
